FAERS Safety Report 23977336 (Version 1)
Quarter: 2024Q2

REPORT INFORMATION
  Report Type: Other
  Country: IR (occurrence: IR)
  Receive Date: 20240614
  Receipt Date: 20240614
  Transmission Date: 20240716
  Serious: Yes (Death, Hospitalization, Congenital Anomaly, Other)
  Sender: FDA-Public Use
  Company Number: IR-Merck Healthcare KGaA-2024031281

PATIENT
  Sex: Male
  Weight: 3 kg

DRUGS (2)
  1. METFORMIN [Suspect]
     Active Substance: METFORMIN HYDROCHLORIDE
     Indication: Polycystic ovarian syndrome
     Route: 064
  2. LEVOTHYROXINE [Suspect]
     Active Substance: LEVOTHYROXINE\LEVOTHYROXINE SODIUM
     Indication: Anti-thyroid antibody positive
     Route: 064

REACTIONS (9)
  - Cardiopulmonary failure [Fatal]
  - Foetal growth restriction [Unknown]
  - Left atrial dilatation [Unknown]
  - Left ventricular dilatation [Unknown]
  - Holoprosencephaly [Unknown]
  - Pleural effusion [Unknown]
  - Atrial septal defect [Unknown]
  - Patent ductus arteriosus [Unknown]
  - Foetal exposure during pregnancy [Recovered/Resolved]
